FAERS Safety Report 10062872 (Version 5)
Quarter: 2015Q1

REPORT INFORMATION
  Report Type: Spontaneous
  Country: US (occurrence: US)
  Receive Date: 20140407
  Receipt Date: 20150120
  Transmission Date: 20150720
  Serious: Yes (Hospitalization)
  Sender: FDA-Public Use
  Company Number: US-BAYER-2014-051772

PATIENT
  Age: 33 Year
  Sex: Female
  Weight: 73.47 kg

DRUGS (1)
  1. MIRENA [Suspect]
     Active Substance: LEVONORGESTREL
     Indication: CONTRACEPTION
     Dosage: 20 MCG/24HR, CONT
     Route: 015
     Dates: start: 20140221, end: 20140327

REACTIONS (7)
  - Abdominal pain [Recovered/Resolved with Sequelae]
  - Dizziness [None]
  - Complication of device removal [None]
  - Uterine perforation [Recovered/Resolved with Sequelae]
  - Uterine pain [Recovered/Resolved with Sequelae]
  - Device malfunction [None]
  - Nausea [None]

NARRATIVE: CASE EVENT DATE: 2014
